FAERS Safety Report 25220870 (Version 1)
Quarter: 2025Q2

REPORT INFORMATION
  Report Type: Spontaneous
  Country: US (occurrence: US)
  Receive Date: 20250421
  Receipt Date: 20250421
  Transmission Date: 20250716
  Serious: Yes (Hospitalization, Other)
  Sender: BAYER HEALTHCARE PHARMACEUTICALS INC.
  Company Number: US-BAYER-2025A048877

PATIENT
  Age: 72 Year
  Sex: Female
  Weight: 49 kg

DRUGS (14)
  1. STIVARGA [Suspect]
     Active Substance: REGORAFENIB MONOHYDRATE
     Indication: Glioblastoma
     Dosage: 160 MG, QD
     Dates: start: 20250323, end: 20250328
  2. LOMUSTINE [Suspect]
     Active Substance: LOMUSTINE
     Indication: Glioblastoma
     Dates: start: 20250322
  3. DONEPEZIL [Concomitant]
     Active Substance: DONEPEZIL
  4. RITALIN [Concomitant]
     Active Substance: METHYLPHENIDATE HYDROCHLORIDE
  5. METOPROLOL TARTRATE [Concomitant]
     Active Substance: METOPROLOL TARTRATE
  6. DISULFIRAM [Concomitant]
     Active Substance: DISULFIRAM
  7. FLUOXETINE [Concomitant]
     Active Substance: FLUOXETINE HYDROCHLORIDE
  8. TRIAMCINOLONE [Concomitant]
     Active Substance: TRIAMCINOLONE
  9. ONDANSETRON [Concomitant]
     Active Substance: ONDANSETRON
  10. GEMTESA [Concomitant]
     Active Substance: VIBEGRON
  11. PIOGLITAZONE [Concomitant]
     Active Substance: PIOGLITAZONE
  12. VITAMIN D [Concomitant]
     Active Substance: VITAMIN D NOS
  13. VITAMIN B COMPLEX [Concomitant]
     Active Substance: CYANOCOBALAMIN\DEXPANTHENOL\NIACINAMIDE\PYRIDOXINE HYDROCHLORIDE\RIBOFLAVIN 5^-PHOSPHATE SODIUM\THIA
  14. VITAMINS [Concomitant]
     Active Substance: VITAMINS

REACTIONS (5)
  - Fatigue [Recovered/Resolved with Sequelae]
  - Memory impairment [None]
  - Gait disturbance [None]
  - Asthenia [None]
  - Product use in unapproved indication [None]

NARRATIVE: CASE EVENT DATE: 20250323
